FAERS Safety Report 10969843 (Version 1)
Quarter: 2015Q1

REPORT INFORMATION
  Report Type: Spontaneous
  Country: US (occurrence: US)
  Receive Date: 20150331
  Receipt Date: 20150331
  Transmission Date: 20150721
  Serious: No
  Sender: FDA-Public Use
  Company Number: US-PFIZER INC-2015111359

PATIENT
  Sex: Female

DRUGS (6)
  1. DURAGESIC [Suspect]
     Active Substance: FENTANYL
  2. NUVIGIL [Suspect]
     Active Substance: ARMODAFINIL
  3. BUTRANS [Suspect]
     Active Substance: BUPRENORPHINE
  4. ERYTHROMYCIN. [Suspect]
     Active Substance: ERYTHROMYCIN
     Dosage: 2X/DAY
  5. ARTHROTEC [Suspect]
     Active Substance: DICLOFENAC SODIUM\MISOPROSTOL
  6. REGLAN [Suspect]
     Active Substance: METOCLOPRAMIDE HYDROCHLORIDE

REACTIONS (1)
  - Drug hypersensitivity [Unknown]
